FAERS Safety Report 5778351-8 (Version None)
Quarter: 2008Q2

REPORT INFORMATION
  Report Type: 
  Country: None (occurrence: None)
  Receive Date: 20080619
  Receipt Date: 20080519
  Transmission Date: 20081010
  Serious: Yes (Death)
  Sender: FDA-Public Use
  Company Number: PHBS2008NO04738

PATIENT

DRUGS (3)
  1. OXCARBAZEPINE [Suspect]
     Indication: EPILEPSY
     Dosage: 1500MG/DAY
  2. LAMOTRIGINE [Suspect]
     Indication: EPILEPSY
  3. VIGABATRIN [Suspect]
     Indication: EPILEPSY
     Dosage: 3000MG/DAY

REACTIONS (8)
  - ABSCESS [None]
  - COMPLEX PARTIAL SEIZURES [None]
  - CONVULSION [None]
  - HAEMORRHAGE [None]
  - INAPPROPRIATE ANTIDIURETIC HORMONE SECRETION [None]
  - PULMONARY OEDEMA [None]
  - SUDDEN DEATH [None]
  - WOUND [None]
